FAERS Safety Report 18480770 (Version 4)
Quarter: 2020Q4

REPORT INFORMATION
  Report Type: Spontaneous
  Country: SK (occurrence: SK)
  Receive Date: 20201109
  Receipt Date: 20201216
  Transmission Date: 20210114
  Serious: Yes (Hospitalization, Other)
  Sender: FDA-Public Use
  Company Number: SK-MYLANLABS-2020M1093127

PATIENT
  Age: 68 Year
  Sex: Female

DRUGS (5)
  1. LEVODOPA [Suspect]
     Active Substance: LEVODOPA
     Indication: PARKINSON^S DISEASE
     Dosage: 300 MG, QD
  2. LEVODOPA [Suspect]
     Active Substance: LEVODOPA
     Indication: GAIT DISTURBANCE
  3. QUETIAPINE. [Concomitant]
     Active Substance: QUETIAPINE
     Indication: PRODUCT USED FOR UNKNOWN INDICATION
     Dosage: 62.5 MILLIGRAM, QD
  4. QUETIAPINE. [Concomitant]
     Active Substance: QUETIAPINE
     Dosage: UNK
  5. ROPINIROLE. [Suspect]
     Active Substance: ROPINIROLE
     Indication: PARKINSON^S DISEASE
     Dosage: 8 MILLIGRAM
     Route: 065

REACTIONS (6)
  - Asymptomatic bacteriuria [Recovered/Resolved]
  - Parkinson^s disease psychosis [Recovered/Resolved]
  - Delusion [Recovered/Resolved]
  - Acute psychosis [Recovered/Resolved]
  - Hallucination [Recovered/Resolved]
  - Hallucination, visual [Recovered/Resolved]
